FAERS Safety Report 11575694 (Version 1)
Quarter: 2015Q3

REPORT INFORMATION
  Report Type: Spontaneous
  Country: US (occurrence: US)
  Receive Date: 20150916
  Receipt Date: 20150916
  Transmission Date: 20151125
  Serious: No
  Sender: FDA-Public Use
  Company Number: US-ELI_LILLY_AND_COMPANY-US200903003888

PATIENT
  Age: 76 Year
  Sex: Female
  Weight: 50.34 kg

DRUGS (10)
  1. FORTEO [Suspect]
     Active Substance: TERIPARATIDE
     Indication: OSTEOPOROSIS
     Dosage: 20 UG, DAILY (1/D)
     Route: 058
     Dates: start: 20090303, end: 2009
  2. BETIMOL                            /00371201/ [Concomitant]
     Dosage: 1 D/F, DAILY (1/D)
  3. CENTRUM SILVER                     /02363801/ [Concomitant]
     Active Substance: VITAMINS
     Dosage: 1 D/F, DAILY (1/D)
     Route: 048
  4. APPETON ESSENTIALS NATURAL VITAMIN E [Concomitant]
     Dosage: 1 D/F, DAILY (1/D)
     Route: 048
  5. FORTEO [Suspect]
     Active Substance: TERIPARATIDE
     Dosage: 20 UG, DAILY (1/D)
     Route: 058
     Dates: start: 2009, end: 20090619
  6. CALTRATE WITH VITAMIN D [Concomitant]
     Active Substance: CALCIUM CARBONATE\CHOLECALCIFEROL
     Dosage: 600 MG, 3/D
  7. CELEBREX [Concomitant]
     Active Substance: CELECOXIB
     Dosage: 200 MG, 2/D
  8. VITAMIN B12 [Concomitant]
     Active Substance: CYANOCOBALAMIN
     Dosage: 1000 UG, DAILY (1/D)
  9. REFRESH                            /00007001/ [Concomitant]
     Dosage: 2 D/F, DAILY (1/D)
  10. PREVACID [Concomitant]
     Active Substance: LANSOPRAZOLE
     Dosage: 15 MG, DAILY (1/D)
     Route: 048

REACTIONS (16)
  - Musculoskeletal discomfort [Unknown]
  - Fatigue [Recovered/Resolved]
  - Headache [Unknown]
  - Insomnia [Recovering/Resolving]
  - Gait disturbance [Unknown]
  - Head discomfort [Recovered/Resolved]
  - Pollakiuria [Unknown]
  - Somnolence [Recovering/Resolving]
  - Nasal congestion [Unknown]
  - Feeling abnormal [Recovered/Resolved]
  - Somnolence [Recovered/Resolved]
  - Muscle spasms [Recovered/Resolved]
  - Myalgia [Recovered/Resolved]
  - Injection site bruising [Recovered/Resolved]
  - Muscular weakness [Unknown]
  - Weight decreased [Unknown]

NARRATIVE: CASE EVENT DATE: 2009
